FAERS Safety Report 6557835-9 (Version None)
Quarter: 2010Q1

REPORT INFORMATION
  Report Type: 
  Country: None (occurrence: None)
  Receive Date: 20100128
  Receipt Date: 20100128
  Transmission Date: 20100710
  Serious: Yes (Other)
  Sender: FDA-Public Use
  Company Number: None

PATIENT
  Age: 54 Year
  Sex: Female
  Weight: 59.2851 kg

DRUGS (2)
  1. GLUCOPHAGE [Suspect]
     Indication: TYPE 2 DIABETES MELLITUS
     Dosage: 500MG PO BID  (WEEKS - MONTHS)
     Route: 048
  2. ATENOLOL [Concomitant]

REACTIONS (2)
  - ABDOMINAL DISCOMFORT [None]
  - DRUG INTOLERANCE [None]
